FAERS Safety Report 7064380-3 (Version None)
Quarter: 2010Q4

REPORT INFORMATION
  Report Type: 
  Country: None (occurrence: None)
  Receive Date: 20101027
  Receipt Date: 20101020
  Transmission Date: 20110411
  Serious: Yes (Death, Other)
  Sender: FDA-Public Use
  Company Number: JP-BRISTOL-MYERS SQUIBB COMPANY-15348576

PATIENT
  Age: 55 Year
  Sex: Female
  Weight: 40 kg

DRUGS (1)
  1. HYDREA [Suspect]
     Indication: POLYCYTHAEMIA VERA
     Route: 048

REACTIONS (4)
  - JC VIRUS INFECTION [None]
  - PNEUMONIA ASPIRATION [None]
  - PROGRESSIVE MULTIFOCAL LEUKOENCEPHALOPATHY [None]
  - RENAL FAILURE [None]
